FAERS Safety Report 24187593 (Version 1)
Quarter: 2024Q3

REPORT INFORMATION
  Report Type: Spontaneous
  Country: ES (occurrence: ES)
  Receive Date: 20240808
  Receipt Date: 20240808
  Transmission Date: 20241016
  Serious: Yes (Other)
  Sender: TEVA
  Company Number: None

PATIENT
  Age: 35 Year
  Sex: Male

DRUGS (1)
  1. EPIRUBICIN [Suspect]
     Active Substance: EPIRUBICIN
     Indication: Sarcoma
     Dosage: EPIRUBICIN HYDROCHLORIDE (364CH)
     Route: 042
     Dates: start: 20240612, end: 20240612

REACTIONS (3)
  - Epiglottic oedema [Recovered/Resolved]
  - Lip oedema [Recovered/Resolved]
  - Rash [Recovered/Resolved]

NARRATIVE: CASE EVENT DATE: 20240612
